FAERS Safety Report 9999106 (Version 2)
Quarter: 2014Q1

REPORT INFORMATION
  Report Type: Report from Study
  Country: US (occurrence: US)
  Receive Date: 20140312
  Receipt Date: 20140312
  Transmission Date: 20141002
  Serious: Yes (Hospitalization)
  Sender: FDA-Public Use
  Company Number: US-ROCHE-1355422

PATIENT
  Sex: Male
  Weight: 70.37 kg

DRUGS (3)
  1. RITUXAN [Suspect]
     Indication: BASAL CELL CARCINOMA
     Route: 065
     Dates: start: 2006
  2. RITUXAN [Suspect]
     Indication: NON-HODGKIN^S LYMPHOMA
     Route: 065
     Dates: start: 2007
  3. RITUXAN [Suspect]
     Route: 065
     Dates: start: 2012

REACTIONS (27)
  - Ulcer haemorrhage [Recovered/Resolved]
  - Hypertension [Unknown]
  - Hemiparesis [Unknown]
  - Ear infection [Unknown]
  - Bronchitis [Unknown]
  - Influenza [Unknown]
  - Fall [Unknown]
  - Weight decreased [Unknown]
  - Recurrent cancer [Unknown]
  - Fatigue [Unknown]
  - Visual acuity reduced [Unknown]
  - Vision blurred [Recovering/Resolving]
  - Eye disorder [Unknown]
  - Eye infection [Unknown]
  - Anaemia [Unknown]
  - Blood pressure increased [Unknown]
  - Rhinorrhoea [Unknown]
  - Fatigue [Unknown]
  - Headache [Unknown]
  - Balance disorder [Unknown]
  - Pollakiuria [Unknown]
  - Dysuria [Unknown]
  - Hyperlipidaemia [Unknown]
  - Dyspnoea [Unknown]
  - Muscle strain [Unknown]
  - Lower limb fracture [Unknown]
  - Balance disorder [Unknown]
